FAERS Safety Report 16421923 (Version 2)
Quarter: 2019Q2

REPORT INFORMATION
  Report Type: Spontaneous
  Country: US (occurrence: US)
  Receive Date: 20190612
  Receipt Date: 20190621
  Transmission Date: 20190711
  Serious: Yes (Other)
  Sender: FDA-Public Use
  Company Number: US-ASTRAZENECA-2018SF14736

PATIENT
  Age: 990 Month
  Sex: Male
  Weight: 93.6 kg

DRUGS (20)
  1. PROTONIX [Suspect]
     Active Substance: PANTOPRAZOLE SODIUM
     Indication: GASTRIC PH DECREASED
     Route: 065
     Dates: start: 199001, end: 201708
  2. HYDROCHLOROTHIAZIDE. [Concomitant]
     Active Substance: HYDROCHLOROTHIAZIDE
  3. ATENOLOL. [Concomitant]
     Active Substance: ATENOLOL
  4. ENALAPRIL [Concomitant]
     Active Substance: ENALAPRIL
  5. NEXIUM [Suspect]
     Active Substance: ESOMEPRAZOLE MAGNESIUM
     Indication: GASTRIC PH DECREASED
     Route: 048
     Dates: start: 199001, end: 201708
  6. TYLENOL [Concomitant]
     Active Substance: ACETAMINOPHEN
  7. FAMOTIDINE. [Concomitant]
     Active Substance: FAMOTIDINE
  8. ASPIRIN. [Concomitant]
     Active Substance: ASPIRIN
  9. ONDANSETRON [Concomitant]
     Active Substance: ONDANSETRON
  10. LISINOPRIL. [Concomitant]
     Active Substance: LISINOPRIL
  11. ONDANSETRON [Concomitant]
     Active Substance: ONDANSETRON
  12. PREVACID [Suspect]
     Active Substance: LANSOPRAZOLE
     Indication: GASTRIC PH DECREASED
     Route: 065
     Dates: start: 199001, end: 201708
  13. METOPROLOL. [Concomitant]
     Active Substance: METOPROLOL
  14. FUROSEMIDE. [Concomitant]
     Active Substance: FUROSEMIDE
  15. PROMETHAZINE [Concomitant]
     Active Substance: PROMETHAZINE\PROMETHAZINE HYDROCHLORIDE
  16. LORATADINE. [Concomitant]
     Active Substance: LORATADINE
  17. CARVEDILOL. [Concomitant]
     Active Substance: CARVEDILOL
  18. PRILOSEC [Suspect]
     Active Substance: OMEPRAZOLE MAGNESIUM
     Indication: GASTRIC PH DECREASED
     Route: 048
     Dates: start: 199001, end: 201708
  19. PRILOSEC OTC [Suspect]
     Active Substance: OMEPRAZOLE MAGNESIUM
     Indication: GASTRIC PH DECREASED
     Route: 048
     Dates: start: 199001, end: 201708
  20. HYDROCODONE BITARTRATE AND ACETAMINOPHEN [Concomitant]
     Active Substance: ACETAMINOPHEN\HYDROCODONE BITARTRATE

REACTIONS (7)
  - Chronic kidney disease [Unknown]
  - Renal injury [Unknown]
  - Renal failure [Unknown]
  - Acute kidney injury [Unknown]
  - End stage renal disease [Unknown]
  - Tubulointerstitial nephritis [Unknown]
  - Dyspepsia [Unknown]

NARRATIVE: CASE EVENT DATE: 201406
